FAERS Safety Report 23193485 (Version 4)
Quarter: 2023Q4

REPORT INFORMATION
  Report Type: Other
  Country: US (occurrence: US)
  Receive Date: 20231116
  Receipt Date: 20231224
  Transmission Date: 20240110
  Serious: No
  Sender: FDA-Public Use
  Company Number: US-TRAVERE-2023TVT00446

PATIENT
  Age: 61 Year
  Sex: Male

DRUGS (7)
  1. FILSPARI [Suspect]
     Active Substance: SPARSENTAN
     Indication: IgA nephropathy
     Dosage: 400 MG
     Route: 048
     Dates: start: 202307
  2. CLONIDINE HYDROCHLORIDE [Concomitant]
     Active Substance: CLONIDINE HYDROCHLORIDE
  3. ATORVASTATIN CALCIUM [Concomitant]
     Active Substance: ATORVASTATIN CALCIUM
  4. TORSEMIDE [Concomitant]
     Active Substance: TORSEMIDE
  5. ELIQUIS [Concomitant]
     Active Substance: APIXABAN
  6. PREDNISONE [Concomitant]
     Active Substance: PREDNISONE
  7. CORICIDIN HBP CHEST CONG-COUGH [Concomitant]

REACTIONS (9)
  - Oedema [None]
  - Blood potassium decreased [Unknown]
  - Muscle spasms [Unknown]
  - Back pain [Unknown]
  - Mobility decreased [Unknown]
  - Oedema peripheral [Unknown]
  - Urine abnormality [None]
  - Drug ineffective [None]
  - Nasopharyngitis [Unknown]
